FAERS Safety Report 13301550 (Version 1)
Quarter: 2017Q1

REPORT INFORMATION
  Report Type: Spontaneous
  Country: US (occurrence: US)
  Receive Date: 20170307
  Receipt Date: 20170307
  Transmission Date: 20170428
  Serious: Yes (Other)
  Sender: FDA-Public Use
  Company Number: US-AMGEN-USASP2017031437

PATIENT
  Age: 56 Year
  Sex: Female

DRUGS (1)
  1. BLINCYTO [Suspect]
     Active Substance: BLINATUMOMAB
     Indication: B PRECURSOR TYPE ACUTE LEUKAEMIA
     Dosage: UNK
     Route: 065
     Dates: start: 2016

REACTIONS (3)
  - Escherichia bacteraemia [Recovered/Resolved]
  - Leukaemia recurrent [Unknown]
  - Acute lymphocytic leukaemia refractory [Unknown]

NARRATIVE: CASE EVENT DATE: 201611
